FAERS Safety Report 4646693-5 (Version None)
Quarter: 2005Q2

REPORT INFORMATION
  Report Type: 
  Country: None (occurrence: None)
  Receive Date: 20050425
  Receipt Date: 20050412
  Transmission Date: 20051028
  Serious: Yes (Other)
  Sender: FDA-Public Use
  Company Number: US-2005-005403

PATIENT
  Age: 33 Year
  Sex: Female

DRUGS (1)
  1. MIRENA (LEVONORGESTEREL) IUS [Suspect]
     Dosage: 20 UG/DAY CONT. INTRA-UTERINE
     Route: 015

REACTIONS (2)
  - FOCAL NODULAR HYPERPLASIA [None]
  - HEPATIC NEOPLASM [None]
